FAERS Safety Report 7150636-2 (Version None)
Quarter: 2010Q4

REPORT INFORMATION
  Report Type: 
  Country: None (occurrence: None)
  Receive Date: 20101210
  Receipt Date: 20101202
  Transmission Date: 20110411
  Serious: Yes (Hospitalization, Other)
  Sender: FDA-Public Use
  Company Number: FI-JNJFOC-20101106838

PATIENT
  Age: 50 Year
  Sex: Female

DRUGS (5)
  1. RISPERDAL [Suspect]
     Indication: BIPOLAR DISORDER
     Route: 065
  2. RISPERDAL [Suspect]
     Route: 065
  3. LITO [Concomitant]
     Route: 065
  4. TEMAZEPAM [Concomitant]
     Route: 065
  5. MEDIPAM [Concomitant]
     Route: 065

REACTIONS (5)
  - BLOOD PROLACTIN INCREASED [None]
  - BREAST CANCER [None]
  - CONSTIPATION [None]
  - GALACTORRHOEA [None]
  - MALAISE [None]
